FAERS Safety Report 4508190-7 (Version None)
Quarter: 2004Q4

REPORT INFORMATION
  Report Type: 
  Country: None (occurrence: None)
  Receive Date: 20041123
  Receipt Date: 20031110
  Transmission Date: 20050328
  Serious: No
  Sender: FDA-Public Use
  Company Number: US-GLAXOSMITHKLINE-A0439036A

PATIENT
  Age: 76 Year
  Sex: Male

DRUGS (8)
  1. WELLBUTRIN [Suspect]
     Indication: DEPRESSION
     Dosage: 150MG PER DAY
     Route: 048
     Dates: start: 20031001
  2. LOPID [Concomitant]
  3. ARICEPT [Concomitant]
  4. FOLTX [Concomitant]
  5. VIOXX [Concomitant]
  6. ACIPHEX [Concomitant]
  7. MULTI-VITAMIN [Concomitant]
  8. ASPIRIN [Concomitant]

REACTIONS (1)
  - VISION BLURRED [None]
